FAERS Safety Report 23842152 (Version 1)
Quarter: 2024Q2

REPORT INFORMATION
  Report Type: Spontaneous
  Country: FR (occurrence: FR)
  Receive Date: 20240510
  Receipt Date: 20240510
  Transmission Date: 20240716
  Serious: Yes (Death)
  Sender: FDA-Public Use
  Company Number: None

PATIENT
  Age: 66 Year
  Sex: Male
  Weight: 88 kg

DRUGS (5)
  1. AMIODARONE [Interacting]
     Active Substance: AMIODARONE
     Indication: Atrial fibrillation
     Dosage: 800 MG/DAY
     Route: 048
     Dates: start: 202402, end: 202402
  2. AMIODARONE [Interacting]
     Active Substance: AMIODARONE
     Dosage: 200 MG/DAY
     Route: 048
     Dates: start: 202402, end: 20240411
  3. LENVIMA [Interacting]
     Active Substance: LENVATINIB
     Indication: Thyroid cancer
     Dosage: 24 MILLIGRAM, QD (24 MG/DAY)
     Route: 048
     Dates: start: 20231010, end: 202402
  4. LENVIMA [Interacting]
     Active Substance: LENVATINIB
     Dosage: 18 MILLIGRAM, QD (DOSAGE REDUCTION DUE TO POTENTIAL INTERACTION WITH AMIODARONE (CYP 3A4))
     Route: 048
     Dates: start: 202402, end: 20240411
  5. ELIQUIS [Interacting]
     Active Substance: APIXABAN
     Indication: Atrial fibrillation
     Dosage: 5 MILLIGRAM (5 MG/12 HOURS)
     Route: 048
     Dates: start: 202402, end: 20240411

REACTIONS (2)
  - Haemoptysis [Fatal]
  - Drug interaction [Unknown]

NARRATIVE: CASE EVENT DATE: 20240411
